FAERS Safety Report 20950914 (Version 1)
Quarter: 2022Q2

REPORT INFORMATION
  Report Type: Spontaneous
  Country: US (occurrence: None)
  Receive Date: 20220613
  Receipt Date: 20220613
  Transmission Date: 20220721
  Serious: Yes (Hospitalization)
  Sender: FDA-Public Use
  Company Number: None

PATIENT
  Sex: Female

DRUGS (2)
  1. DROXIDOPA [Suspect]
     Active Substance: DROXIDOPA
     Indication: Autonomic nervous system imbalance
     Dosage: TAKE 1 CAPSULE BY MOUTH THREE TIMES DAILY
     Route: 048
     Dates: start: 20220414
  2. DROXIDOPA [Concomitant]

REACTIONS (1)
  - Hospitalisation [None]
